FAERS Safety Report 9828605 (Version 1)
Quarter: 2014Q1

REPORT INFORMATION
  Report Type: Spontaneous
  Country: SI (occurrence: SI)
  Receive Date: 20140117
  Receipt Date: 20140117
  Transmission Date: 20141002
  Serious: Yes (Other)
  Sender: FDA-Public Use
  Company Number: SI-WATSON-2013-24607

PATIENT
  Age: 57 Year
  Sex: Female

DRUGS (2)
  1. BOPACATIN [Suspect]
     Indication: OVARIAN CANCER
     Dosage: 600 MG, UNK
     Route: 042
  2. GRANISETRON [Concomitant]
     Indication: PRODUCT USED FOR UNKNOWN INDICATION
     Dosage: 3 MG, UNK
     Route: 065

REACTIONS (4)
  - Palpitations [Recovered/Resolved]
  - Erythema [Recovered/Resolved]
  - Headache [Recovered/Resolved]
  - Chills [Recovered/Resolved]
